FAERS Safety Report 10070078 (Version 2)
Quarter: 2015Q1

REPORT INFORMATION
  Report Type: Report from Study
  Country: HK (occurrence: HK)
  Receive Date: 20140410
  Receipt Date: 20150120
  Transmission Date: 20150720
  Serious: Yes (Other)
  Sender: FDA-Public Use
  Company Number: HK-ROCHE-1375495

PATIENT
  Age: 38 Year
  Sex: Male

DRUGS (6)
  1. PENTAMIDINE (AEROSOLIZED) [Concomitant]
     Indication: PROPHYLAXIS
     Route: 065
  2. VINCRISTINE [Concomitant]
     Active Substance: VINCRISTINE
     Indication: LYMPHOCYTIC LYMPHOMA
     Route: 065
     Dates: start: 2011
  3. FLUDARABINE [Concomitant]
     Active Substance: FLUDARABINE PHOSPHATE
     Indication: LYMPHOCYTIC LYMPHOMA
     Route: 065
     Dates: start: 2010
  4. RITUXIMAB [Suspect]
     Active Substance: RITUXIMAB
     Indication: LYMPHOCYTIC LYMPHOMA
     Route: 065
     Dates: start: 2010
  5. CYCLOPHOSPHAMID [Concomitant]
     Active Substance: CYCLOPHOSPHAMIDE
     Indication: LYMPHOCYTIC LYMPHOMA
     Route: 065
     Dates: start: 2010
  6. OBINUTUZUMAB [Suspect]
     Active Substance: OBINUTUZUMAB
     Indication: LYMPHOCYTIC LYMPHOMA
     Route: 065
     Dates: start: 201402

REACTIONS (7)
  - Dyspnoea [Recovering/Resolving]
  - Fungal infection [Recovering/Resolving]
  - Lymphocytic infiltration [Recovering/Resolving]
  - Lower respiratory tract infection bacterial [Unknown]
  - Chronic hepatitis B [Recovered/Resolved]
  - Pyrexia [Recovered/Resolved]
  - Bone marrow failure [Recovering/Resolving]

NARRATIVE: CASE EVENT DATE: 201307
